FAERS Safety Report 7180355-8 (Version None)
Quarter: 2010Q4

REPORT INFORMATION
  Report Type: 
  Country: None (occurrence: None)
  Receive Date: 20101221
  Receipt Date: 20101217
  Transmission Date: 20110411
  Serious: Yes (Other)
  Sender: FDA-Public Use
  Company Number: A0900464A

PATIENT
  Age: 80 Year
  Sex: Female

DRUGS (2)
  1. ADVAIR [Suspect]
     Dosage: 500MCG TWICE PER DAY
     Route: 065
  2. SPIRIVA [Concomitant]
     Route: 065

REACTIONS (3)
  - DRUG INEFFECTIVE [None]
  - NEOPLASM MALIGNANT [None]
  - SURGERY [None]
